FAERS Safety Report 5321006-4 (Version None)
Quarter: 2007Q2

REPORT INFORMATION
  Report Type: 
  Country: None (occurrence: None)
  Receive Date: 20070209
  Receipt Date: 20061110
  Transmission Date: 20071010
  Serious: Yes (Other)
  Sender: FDA-Public Use
  Company Number: CTI_0911_2006

PATIENT
  Age: 57 Year
  Sex: Male

DRUGS (8)
  1. ZYFLO [Suspect]
     Indication: ASTHMA
     Dosage: 600 MG 4 X DAY PO
     Route: 048
     Dates: start: 20060825, end: 20061013
  2. ZYFLO [Suspect]
     Indication: NASAL POLYPS
     Dosage: 600 MG 4 X DAY PO
     Route: 048
     Dates: start: 20060825, end: 20061013
  3. LIPITOR [Concomitant]
  4. CAPTOPRIL [Concomitant]
  5. GLUCOPHAGE [Concomitant]
  6. AFRIN [Concomitant]
  7. NASONEX [Concomitant]
  8. PREDNISONE TAB [Concomitant]

REACTIONS (2)
  - ALANINE AMINOTRANSFERASE INCREASED [None]
  - ASPARTATE AMINOTRANSFERASE INCREASED [None]
